FAERS Safety Report 8229594-5 (Version None)
Quarter: 2012Q1

REPORT INFORMATION
  Report Type: 
  Country: None (occurrence: None)
  Receive Date: 20120322
  Receipt Date: 20120313
  Transmission Date: 20120608
  Serious: Yes (Other)
  Sender: FDA-Public Use
  Company Number: PHHY2012CA019942

PATIENT
  Sex: Female

DRUGS (1)
  1. CLOZARIL [Suspect]
     Indication: SCHIZOPHRENIA
     Route: 048
     Dates: start: 20120126, end: 20120224

REACTIONS (5)
  - DEPRESSED LEVEL OF CONSCIOUSNESS [None]
  - COMA [None]
  - PNEUMONIA [None]
  - URINARY TRACT INFECTION [None]
  - SCHIZOPHRENIA [None]
